FAERS Safety Report 21749669 (Version 1)
Quarter: 2022Q4

REPORT INFORMATION
  Report Type: Spontaneous
  Country: FR (occurrence: FR)
  Receive Date: 20221219
  Receipt Date: 20221219
  Transmission Date: 20230112
  Serious: Yes (Other)
  Sender: FDA-Public Use
  Company Number: None

PATIENT
  Age: 70 Year
  Sex: Male
  Weight: 79.4 kg

DRUGS (7)
  1. BRAFTOVI [Suspect]
     Active Substance: ENCORAFENIB
     Indication: Malignant melanoma stage IV
     Dosage: UNK
     Route: 048
     Dates: start: 20220203, end: 202203
  2. BRAFTOVI [Suspect]
     Active Substance: ENCORAFENIB
     Dosage: 4 DF DAILY
     Route: 048
     Dates: start: 202203, end: 20221013
  3. MEKTOVI [Suspect]
     Active Substance: BINIMETINIB
     Indication: Malignant melanoma stage IV
     Dosage: UNK
     Route: 048
     Dates: start: 20220203, end: 202203
  4. MEKTOVI [Suspect]
     Active Substance: BINIMETINIB
     Dosage: 2 DF, BID (2/DAY)
     Route: 048
     Dates: start: 202203, end: 20221013
  5. ASPIRIN [Concomitant]
     Active Substance: ASPIRIN
     Indication: Aortic arteriosclerosis
     Dosage: 100 MG, 1X/DAY
     Route: 048
     Dates: end: 20221020
  6. ROSUVASTATIN [Concomitant]
     Active Substance: ROSUVASTATIN
     Indication: Hypercholesterolaemia
     Dosage: 10 MG, 1X/DAY
     Route: 048
  7. CANDESARTAN + HIDROCLOROTIAZIDA TEVA [Concomitant]
     Indication: Hypertension
     Dosage: 1 DF, 1X/DAY
     Route: 048
     Dates: end: 20221020

REACTIONS (2)
  - Hepatic cytolysis [Recovered/Resolved]
  - Hepatitis [Recovering/Resolving]

NARRATIVE: CASE EVENT DATE: 20220203
